FAERS Safety Report 23449805 (Version 3)
Quarter: 2025Q1

REPORT INFORMATION
  Report Type: Other
  Country: CA (occurrence: CA)
  Receive Date: 20240129
  Receipt Date: 20250313
  Transmission Date: 20250408
  Serious: No
  Sender: TOLMAR
  Company Number: CA-TOLMAR, INC.-24CA045900

PATIENT
  Age: 64 Year
  Sex: Male

DRUGS (3)
  1. ELIGARD [Suspect]
     Active Substance: LEUPROLIDE ACETATE
     Indication: Prostate cancer
     Dosage: 22.5 MILLIGRAM, Q 3 MONTH
     Route: 058
     Dates: start: 20240103
  2. ELIGARD [Suspect]
     Active Substance: LEUPROLIDE ACETATE
     Dosage: 22.5 MILLIGRAM, Q 3 MONTH
     Route: 058
     Dates: start: 20241204
  3. ELIGARD [Suspect]
     Active Substance: LEUPROLIDE ACETATE
     Dosage: 22.5 MILLIGRAM, Q 3 MONTH
     Route: 058
     Dates: start: 20250225

REACTIONS (5)
  - Injection site pain [Recovered/Resolved]
  - Injection site pain [Recovered/Resolved]
  - Hot flush [Unknown]
  - Weight increased [Unknown]
  - Fatigue [Unknown]

NARRATIVE: CASE EVENT DATE: 20240103
